FAERS Safety Report 24010861 (Version 1)
Quarter: 2024Q2

REPORT INFORMATION
  Report Type: Spontaneous
  Country: US (occurrence: None)
  Receive Date: 20240624
  Receipt Date: 20240624
  Transmission Date: 20240716
  Serious: Yes (Disabling)
  Sender: FDA-Public Use
  Company Number: None

PATIENT
  Age: 78 Year
  Sex: Female
  Weight: 78.75 kg

DRUGS (3)
  1. SPIRONOLACTONE [Suspect]
     Active Substance: SPIRONOLACTONE
  2. ISOSORBIDE [Suspect]
     Active Substance: ISOSORBIDE
  3. COREG [Suspect]
     Active Substance: CARVEDILOL

REACTIONS (4)
  - Gait inability [None]
  - Fatigue [None]
  - Dyspnoea [None]
  - Micturition frequency decreased [None]

NARRATIVE: CASE EVENT DATE: 20240101
